FAERS Safety Report 6689139-8 (Version None)
Quarter: 2010Q2

REPORT INFORMATION
  Report Type: 
  Country: None (occurrence: None)
  Receive Date: 20100420
  Receipt Date: 20100414
  Transmission Date: 20101027
  Serious: Yes (Death)
  Sender: FDA-Public Use
  Company Number: US-ELI_LILLY_AND_COMPANY-US201004003878

PATIENT
  Sex: Female

DRUGS (1)
  1. GEMZAR [Suspect]

REACTIONS (1)
  - DEATH [None]
